FAERS Safety Report 6250039-9 (Version None)
Quarter: 2009Q2

REPORT INFORMATION
  Report Type: 
  Country: None (occurrence: None)
  Receive Date: 20090625
  Receipt Date: 20090616
  Transmission Date: 20091009
  Serious: Yes (Congenital Anomaly)
  Sender: FDA-Public Use
  Company Number: 09-06-0010

PATIENT
  Sex: Female

DRUGS (2)
  1. LAMOTRIGINE [Suspect]
     Indication: CONVULSION
     Dosage: 100 MG/DAY, ORAL - FROM LAST MO. OF PREG.
     Route: 048
  2. OXCARBAZEPINE [Suspect]
     Indication: CONVULSION
     Dosage: 1200 MG/DAY, ORAL - FROM 1ST MO. OF PREG.
     Route: 048

REACTIONS (8)
  - ABNORMAL PALMAR/PLANTAR CREASES [None]
  - CAESAREAN SECTION [None]
  - DYSMORPHISM [None]
  - FEEDING DISORDER NEONATAL [None]
  - HYPERTELORISM OF ORBIT [None]
  - HYPOGLYCAEMIA NEONATAL [None]
  - LIMB REDUCTION DEFECT [None]
  - NEONATAL RESPIRATORY DISTRESS SYNDROME [None]
